FAERS Safety Report 6188127-8 (Version None)
Quarter: 2009Q2

REPORT INFORMATION
  Report Type: 
  Country: None (occurrence: None)
  Receive Date: 20090513
  Receipt Date: 20070601
  Transmission Date: 20091009
  Serious: No
  Sender: FDA-Public Use
  Company Number: A0721202A

PATIENT
  Age: 80 Year
  Sex: Female
  Weight: 68.04 kg

DRUGS (6)
  1. DYNACIRC CR [Suspect]
     Indication: HYPERTENSION
     Dosage: 5MG PER DAY
     Route: 048
     Dates: start: 20070531
  2. NORVASC [Suspect]
     Indication: HYPERTENSION
     Dates: end: 20070531
  3. ATENOLOL [Concomitant]
     Indication: DRUG USE FOR UNKNOWN INDICATION
  4. SYNTHROID [Concomitant]
     Indication: DRUG USE FOR UNKNOWN INDICATION
  5. XANAX [Concomitant]
     Indication: DRUG USE FOR UNKNOWN INDICATION
  6. ZEGERID [Concomitant]
     Indication: DRUG USE FOR UNKNOWN INDICATION

REACTIONS (2)
  - DIZZINESS [None]
  - HOT FLUSH [None]
